FAERS Safety Report 4940799-9 (Version None)
Quarter: 2006Q1

REPORT INFORMATION
  Report Type: 
  Country: None (occurrence: None)
  Receive Date: 20060313
  Receipt Date: 20060303
  Transmission Date: 20060701
  Serious: Yes (Hospitalization)
  Sender: FDA-Public Use
  Company Number: NO-JNJFOC-20060301168

PATIENT
  Age: 34 Year
  Sex: Male
  Weight: 72 kg

DRUGS (3)
  1. REMICADE [Suspect]
     Dosage: 2 INFUSIONS
     Route: 042
  2. REMICADE [Suspect]
     Indication: CROHN'S DISEASE
     Dosage: 2 INFUSIONS
     Route: 042
  3. PREDNISOLONE [Concomitant]
     Indication: CROHN'S DISEASE
     Dosage: 20-30MG
     Route: 048

REACTIONS (6)
  - DIARRHOEA [None]
  - INFLUENZA [None]
  - INFUSION RELATED REACTION [None]
  - MALAISE [None]
  - MYALGIA [None]
  - PYREXIA [None]
